FAERS Safety Report 13978551 (Version 1)
Quarter: 2017Q3

REPORT INFORMATION
  Report Type: Spontaneous
  Country: US (occurrence: US)
  Receive Date: 20170915
  Receipt Date: 20170915
  Transmission Date: 20171128
  Serious: Yes (Other)
  Sender: FDA-Public Use
  Company Number: US-PFIZER INC-1087459

PATIENT
  Age: 68 Year
  Sex: Male
  Weight: 64.4 kg

DRUGS (11)
  1. INOTUZUMAB OZOGAMICIN [Suspect]
     Active Substance: INOTUZUMAB OZOGAMICIN
     Indication: DIFFUSE LARGE B-CELL LYMPHOMA
     Dosage: 2.3 MG, CYCLIC, EVERY 21 DAYS
     Route: 042
     Dates: start: 20100701, end: 20100805
  2. BACTRIM [Concomitant]
     Active Substance: SULFAMETHOXAZOLE\TRIMETHOPRIM
     Indication: INFECTION PROPHYLAXIS
     Dosage: NOT REPORTED, NOT REPORTED
  3. RITUXIMAB. [Suspect]
     Active Substance: RITUXIMAB
     Indication: DIFFUSE LARGE B-CELL LYMPHOMA
     Dosage: 656 MG, DAY 2 AND EVERY 21 DAYS
     Route: 042
     Dates: start: 20100728, end: 20100804
  4. MULTIVITAMIN /00097801/ [Concomitant]
     Active Substance: VITAMINS
     Indication: VITAMIN SUPPLEMENTATION
     Dosage: ONE MULTIVITAMIN THRICE DAILY
  5. FOLIC ACID. [Concomitant]
     Active Substance: FOLIC ACID
     Indication: ANAEMIA PROPHYLAXIS
     Dosage: NOT REPORTED, NOT REPORTED
  6. CYTARABINE. [Suspect]
     Active Substance: CYTARABINE
     Indication: PREMEDICATION
     Dosage: NOT REPORTED, NOT REPORTED
     Dates: start: 20101006, end: 20101009
  7. MELPHALAN. [Suspect]
     Active Substance: MELPHALAN
     Indication: PREMEDICATION
     Dosage: NOT REPORTED, NOT REPORTED
     Dates: start: 20101010, end: 20101010
  8. ACICLOVIR [Concomitant]
     Active Substance: ACYCLOVIR
     Indication: INFECTION PROPHYLAXIS
     Dosage: NOT REPORTED, NOT REPORTED
  9. CARMUSTINE [Suspect]
     Active Substance: CARMUSTINE
     Indication: PREMEDICATION
     Dosage: NOT REPORTED, NOT REPORTED
     Dates: start: 20101005, end: 20101005
  10. ETOPOSIDE. [Suspect]
     Active Substance: ETOPOSIDE
     Indication: PREMEDICATION
     Dosage: NOT REPORTED, NOT REPORTED
     Dates: start: 20101006, end: 20101009
  11. FLUCONAZOLE. [Concomitant]
     Active Substance: FLUCONAZOLE
     Indication: INFECTION PROPHYLAXIS
     Dosage: NOT REPORTED, NOT REPORTED

REACTIONS (1)
  - Engraft failure [Not Recovered/Not Resolved]

NARRATIVE: CASE EVENT DATE: 20101101
